FAERS Safety Report 13524558 (Version 1)
Quarter: 2017Q2

REPORT INFORMATION
  Report Type: Spontaneous
  Country: US (occurrence: US)
  Receive Date: 20170508
  Receipt Date: 20170508
  Transmission Date: 20170830
  Serious: Yes (Death, Other)
  Sender: FDA-Public Use
  Company Number: US-BRISTOL-MYERS SQUIBB COMPANY-BMS-2017-037324

PATIENT
  Age: 53 Year
  Sex: Male

DRUGS (2)
  1. EMPLICITI [Suspect]
     Active Substance: ELOTUZUMAB
     Indication: PLASMA CELL MYELOMA
     Route: 042
  2. POMALIDOMIDE [Suspect]
     Active Substance: POMALIDOMIDE
     Indication: PLASMA CELL MYELOMA
     Route: 042

REACTIONS (7)
  - Atrial fibrillation [Unknown]
  - Cytokine release syndrome [Unknown]
  - Renal failure [Unknown]
  - Hypoxia [Unknown]
  - Hepatic function abnormal [Unknown]
  - Death [Fatal]
  - Hypotension [Recovered/Resolved]
